FAERS Safety Report 9011956 (Version 1)
Quarter: 2012Q4

REPORT INFORMATION
  Report Type: Spontaneous
  Country: IN (occurrence: None)
  Receive Date: 20121228
  Receipt Date: 20121228
  Transmission Date: 20130627
  Serious: Yes (Other)
  Sender: FDA-Public Use
  Company Number: DSA_61566_2012

PATIENT
  Age: 54 Year
  Sex: Female

DRUGS (8)
  1. FLUOROURACIL (FLUOROURACIL) [Suspect]
     Indication: BREAST CANCER METASTATIC
  2. PACLITAXEL (PACLITAXEL) [Suspect]
     Indication: BREAST CANCER METASTATIC
  3. PACLITAXEL (PACLITAXEL) [Suspect]
     Indication: BREAST CANCER METASTATIC
  4. PACLITAXEL (PACLITAXEL) [Suspect]
     Indication: BREAST CANCER METASTATIC
  5. PACLITAXEL (PACLITAXEL) [Suspect]
     Indication: BREAST CANCER METASTATIC
  6. EPIRUBICIN (EPIRUBICIN) (EPIRUBICIN) [Suspect]
     Indication: BREAST CANCER METASTATIC
  7. ZOLEDRONIC ACID (ZOLEDRONIC ACID) [Suspect]
     Indication: BREAST CANCER METASTATIC
  8. CYCLOPHOSPHAMIDE (CYCLOPHOSPHAMIDE) [Suspect]
     Indication: BREAST CANCER METASTATIC

REACTIONS (8)
  - Anaemia [None]
  - Alopecia [None]
  - Blood bilirubin increased [None]
  - Aspartate aminotransferase increased [None]
  - Alanine aminotransferase increased [None]
  - Blood alkaline phosphatase increased [None]
  - Thrombophlebitis [None]
  - Prothrombin time abnormal [None]
